FAERS Safety Report 17661632 (Version 1)
Quarter: 2020Q2

REPORT INFORMATION
  Report Type: Spontaneous
  Country: US (occurrence: US)
  Receive Date: 20200413
  Receipt Date: 20200413
  Transmission Date: 20200713
  Serious: Yes (Hospitalization)
  Sender: FDA-Public Use
  Company Number: US-UNICHEM PHARMACEUTICALS (USA) INC-UCM202004-000436

PATIENT
  Age: 64 Year
  Sex: Female

DRUGS (2)
  1. LEVOTHYROXINE. [Suspect]
     Active Substance: LEVOTHYROXINE
     Indication: OVERDOSE
  2. AMLODIPINE [Suspect]
     Active Substance: AMLODIPINE BESYLATE
     Indication: OVERDOSE
     Dosage: UNKNOWN AMOUNT

REACTIONS (12)
  - Liver injury [Unknown]
  - Toxicity to various agents [Unknown]
  - Acute kidney injury [Unknown]
  - Peripheral ischaemia [Unknown]
  - Metabolic acidosis [Unknown]
  - Overdose [Unknown]
  - Rhabdomyolysis [Unknown]
  - Cardiogenic shock [Unknown]
  - Leukocytosis [Unknown]
  - Hypotension [Unknown]
  - Nodal rhythm [Unknown]
  - Harlequin syndrome [Unknown]
